FAERS Safety Report 7726728-3 (Version None)
Quarter: 2011Q3

REPORT INFORMATION
  Report Type: 
  Country: None (occurrence: None)
  Receive Date: 20110902
  Receipt Date: 20110901
  Transmission Date: 20111222
  Serious: Yes (Death, Hospitalization, Disabling, Other)
  Sender: FDA-Public Use
  Company Number: PHEH2006US00793

PATIENT
  Sex: Female

DRUGS (24)
  1. DECADRON [Concomitant]
     Dosage: 20 MG, UNK
     Dates: start: 19930101
  2. XELODA [Concomitant]
  3. MULTI-VITAMINS [Concomitant]
  4. TAXOTERE [Concomitant]
  5. ADRIAMYCIN + 5-FU [Concomitant]
     Dates: start: 19930101
  6. ATIVAN [Concomitant]
     Dosage: 0.5 MG, UNK
     Route: 048
  7. MEGESTROL ACETATE [Concomitant]
     Dosage: 400 MG, DAILY
     Route: 048
  8. FLAGYL [Concomitant]
     Dosage: 500 MG, TID
     Route: 048
  9. EFUDEX [Concomitant]
     Dosage: 795 MG, UNK
  10. SODIUM CHLORIDE [Concomitant]
  11. DIAZEPAM [Concomitant]
  12. PROTONIX [Concomitant]
     Dosage: 40 MG, DAILY
     Route: 048
  13. MOTRIN [Concomitant]
     Dosage: 800 MG, UNK
  14. VICODIN [Concomitant]
  15. FASLODEX [Concomitant]
  16. ZOFRAN [Concomitant]
     Dosage: 8 MG, UNK
     Route: 048
  17. COUMADIN [Concomitant]
     Dosage: 1 MG, DAILY
     Route: 048
  18. AREDIA [Suspect]
     Indication: METASTASES TO BONE
     Dosage: 90 MG, QMO
     Dates: start: 19990101, end: 20030101
  19. ZOMETA [Suspect]
     Indication: METASTASES TO BONE
     Dosage: 4 MG, QMO
     Dates: start: 20030101, end: 20050501
  20. POTASSIUM PHOSPHATES [Concomitant]
     Dosage: 250 MG, DAILY
     Route: 048
  21. POTASSIUM [Concomitant]
     Dosage: 40 MG, DAILY
     Route: 048
  22. PREDNISONE [Concomitant]
     Dosage: 10 MG, DAILY
     Route: 048
  23. HEP-LOCK [Concomitant]
  24. FUROSEMIDE [Concomitant]

REACTIONS (79)
  - PAIN [None]
  - LIFE EXPECTANCY SHORTENED [None]
  - BREAST CANCER METASTATIC [None]
  - BLOOD UREA INCREASED [None]
  - PROTEIN TOTAL INCREASED [None]
  - BLOOD ALKALINE PHOSPHATASE INCREASED [None]
  - URINARY TRACT INFECTION [None]
  - DECREASED APPETITE [None]
  - DYSFUNCTIONAL UTERINE BLEEDING [None]
  - TINNITUS [None]
  - DIZZINESS [None]
  - PRIMARY SEQUESTRUM [None]
  - GINGIVAL BLEEDING [None]
  - CHEST PAIN [None]
  - NAUSEA [None]
  - FATIGUE [None]
  - SPINAL COMPRESSION FRACTURE [None]
  - PLEURAL FIBROSIS [None]
  - ASPARTATE AMINOTRANSFERASE INCREASED [None]
  - FACIAL PAIN [None]
  - ARRHYTHMIA [None]
  - SEPSIS [None]
  - NIGHT SWEATS [None]
  - HYPERTENSION [None]
  - OSTEOLYSIS [None]
  - NEUTROPHIL COUNT INCREASED [None]
  - MONOCYTE PERCENTAGE INCREASED [None]
  - METASTASES TO PERITONEUM [None]
  - HAEMATURIA [None]
  - PYELONEPHRITIS [None]
  - PANCYTOPENIA [None]
  - HYPOAESTHESIA [None]
  - EATING DISORDER [None]
  - WEIGHT DECREASED [None]
  - FEELING ABNORMAL [None]
  - DYSPNOEA [None]
  - SWELLING [None]
  - HIATUS HERNIA [None]
  - VISION BLURRED [None]
  - PALPITATIONS [None]
  - RENAL FAILURE [None]
  - OSTEONECROSIS OF JAW [None]
  - HYPOAESTHESIA ORAL [None]
  - COSTOCHONDRITIS [None]
  - PALMAR-PLANTAR ERYTHRODYSAESTHESIA SYNDROME [None]
  - DYSPHAGIA [None]
  - LUNG NEOPLASM [None]
  - BLOOD CREATINE PHOSPHOKINASE DECREASED [None]
  - WHITE BLOOD CELL COUNT INCREASED [None]
  - PERIODONTAL DISEASE [None]
  - DEATH [None]
  - TOOTHACHE [None]
  - PAIN IN EXTREMITY [None]
  - PYREXIA [None]
  - ASTHENIA [None]
  - METASTASES TO SPINE [None]
  - BLOOD BILIRUBIN INCREASED [None]
  - PLATELET COUNT INCREASED [None]
  - SPINAL OSTEOARTHRITIS [None]
  - HEADACHE [None]
  - GINGIVAL INFECTION [None]
  - INFECTION [None]
  - EMOTIONAL DISTRESS [None]
  - PAIN IN JAW [None]
  - OSTEITIS [None]
  - ABDOMINAL PAIN [None]
  - LYMPHOCYTE PERCENTAGE DECREASED [None]
  - HYDRONEPHROSIS [None]
  - HYDROURETER [None]
  - DECUBITUS ULCER [None]
  - EXPOSED BONE IN JAW [None]
  - DEFORMITY [None]
  - NECK PAIN [None]
  - OROPHARYNGEAL PAIN [None]
  - WHEEZING [None]
  - COUGH [None]
  - ATELECTASIS [None]
  - PLEURAL EFFUSION [None]
  - COLONIC OBSTRUCTION [None]
